FAERS Safety Report 9284421 (Version 2)
Quarter: 2013Q2

REPORT INFORMATION
  Report Type: Spontaneous
  Country: FR (occurrence: FR)
  Receive Date: 20130510
  Receipt Date: 20130531
  Transmission Date: 20140414
  Serious: Yes (Life-Threatening)
  Sender: FDA-Public Use
  Company Number: FR-ASTRAZENECA-2013SE31666

PATIENT
  Age: 21440 Day
  Sex: Female

DRUGS (3)
  1. ARIMIDEX [Suspect]
     Indication: BREAST CANCER
     Route: 048
     Dates: start: 201006
  2. ARIMIDEX [Suspect]
     Indication: BREAST CANCER
     Route: 048
  3. METFORMINE [Suspect]
     Indication: TYPE 2 DIABETES MELLITUS
     Dates: start: 20081121

REACTIONS (1)
  - Photosensitivity reaction [Recovered/Resolved]
